FAERS Safety Report 4880530-9 (Version None)
Quarter: 2006Q1

REPORT INFORMATION
  Report Type: 
  Country: None (occurrence: None)
  Receive Date: 20060113
  Receipt Date: 20060106
  Transmission Date: 20060701
  Serious: Yes (Hospitalization)
  Sender: FDA-Public Use
  Company Number: IT-MERCK-0601ITA00003

PATIENT
  Age: 39 Year
  Sex: Male

DRUGS (8)
  1. CRIXIVAN [Suspect]
     Indication: HIV INFECTION
     Route: 065
     Dates: start: 19970101
  2. NELFINAVIR MESYLATE [Suspect]
     Route: 065
  3. RITONAVIR [Suspect]
     Route: 065
  4. STAVUDINE [Suspect]
     Route: 065
  5. LAMIVUDINE [Suspect]
     Route: 065
  6. ABACAVIR SULFATE [Suspect]
     Route: 065
  7. DIDANOSINE [Suspect]
     Route: 065
  8. INSULIN [Concomitant]
     Route: 065
     Dates: start: 19990901

REACTIONS (9)
  - BLOOD TRIGLYCERIDES INCREASED [None]
  - BLOOD UREA INCREASED [None]
  - DIABETES MELLITUS [None]
  - HYPERGLYCAEMIA [None]
  - HYPERTENSION [None]
  - KETOACIDOSIS [None]
  - LIPODYSTROPHY ACQUIRED [None]
  - PROTEINURIA [None]
  - ZYGOMYCOSIS [None]
